FAERS Safety Report 12396401 (Version 5)
Quarter: 2016Q4

REPORT INFORMATION
  Report Type: Spontaneous
  Country: US (occurrence: US)
  Receive Date: 20160524
  Receipt Date: 20161014
  Transmission Date: 20170207
  Serious: Yes (Hospitalization, Other)
  Sender: FDA-Public Use
  Company Number: US-HORIZON-RAV-0096-2016

PATIENT
  Age: 14 Year
  Sex: Male

DRUGS (3)
  1. CYCLINEX [Concomitant]
  2. CITRULLINE [Concomitant]
     Active Substance: CITRULLINE
  3. RAVICTI [Suspect]
     Active Substance: GLYCEROL PHENYLBUTYRATE
     Indication: ORNITHINE TRANSCARBAMOYLASE DEFICIENCY
     Dosage: 5 ML TID

REACTIONS (6)
  - Appendicectomy [Recovered/Resolved]
  - Decreased appetite [Recovered/Resolved]
  - Gallbladder operation [Recovered/Resolved]
  - Cholelithiasis [Recovered/Resolved]
  - Appendicitis perforated [Recovered/Resolved]
  - Weight decreased [Recovered/Resolved]

NARRATIVE: CASE EVENT DATE: 20160501
